FAERS Safety Report 9669084 (Version 2)
Quarter: 2013Q4

REPORT INFORMATION
  Report Type: Spontaneous
  Country: US (occurrence: US)
  Receive Date: 20131105
  Receipt Date: 20131105
  Transmission Date: 20140711
  Serious: Yes (Hospitalization, Other)
  Sender: FDA-Public Use
  Company Number: US-009507513-0506USA01323

PATIENT
  Sex: Female
  Weight: 113.4 kg

DRUGS (24)
  1. ELAVIL (MADE BY MERCK, MARKETED BY ZENECA) [Concomitant]
     Indication: PAIN
  2. ALPRAZOLAM [Concomitant]
     Indication: ANXIETY
  3. PREVACID [Concomitant]
     Dosage: 30 MG, BID
     Route: 048
  4. EFFEXOR XR [Concomitant]
     Dosage: 37.5-75
  5. XANAX [Concomitant]
     Dosage: 0.5 MG, QD
  6. MAGNESIUM (UNSPECIFIED) [Concomitant]
     Dosage: 500 MG, HS
     Route: 048
  7. ZESTRIL [Concomitant]
  8. TYLENOL [Concomitant]
  9. PAXIL [Concomitant]
  10. VIOXX [Suspect]
     Indication: ARTHRALGIA
     Dosage: 25 MG, QD
     Route: 048
     Dates: start: 20000726, end: 20040930
  11. VIOXX [Suspect]
     Dosage: 50 MG, QD
     Route: 048
     Dates: start: 20010913
  12. INDOCIN [Concomitant]
  13. XALATAN [Concomitant]
     Dosage: 1 DF, HS
  14. ZITHROMAX [Concomitant]
  15. ACIPHEX [Concomitant]
  16. METFORMIN [Concomitant]
  17. ASPIRIN [Concomitant]
  18. ALLEGRA [Concomitant]
     Dosage: 30 MG, HS
     Route: 048
  19. FLONASE [Concomitant]
  20. VERELAN [Concomitant]
  21. NEURONTIN [Concomitant]
  22. ALTACE [Concomitant]
     Indication: HYPERTENSION
     Dosage: 10-60
     Route: 048
  23. NORVASC [Concomitant]
     Indication: HYPERTENSION
  24. MK-0152 [Concomitant]
     Indication: HYPERTENSION
     Dosage: 25 MG, QD
     Route: 048

REACTIONS (43)
  - Acute myocardial infarction [Unknown]
  - Gallbladder disorder [Unknown]
  - Abdominal hernia [Unknown]
  - Renal failure chronic [Not Recovered/Not Resolved]
  - Abdominal pain [Recovering/Resolving]
  - Bile duct stone [Unknown]
  - Pancreatic mass [Unknown]
  - Monoplegia [Unknown]
  - Sudden cardiac death [Unknown]
  - Cardiac failure congestive [Not Recovered/Not Resolved]
  - Pancreatitis [Unknown]
  - Hiatus hernia [Unknown]
  - Hernia [Unknown]
  - Nephrolithiasis [Unknown]
  - Tinea infection [Unknown]
  - Osteoarthritis [Unknown]
  - Gastrooesophageal reflux disease [Unknown]
  - Chest pain [Unknown]
  - Tremor [Unknown]
  - Pulmonary mass [Unknown]
  - Tendonitis [Unknown]
  - Poor dental condition [Unknown]
  - Scar [Unknown]
  - Sleep apnoea syndrome [Unknown]
  - Chest pain [Unknown]
  - Pulmonary hypertension [Unknown]
  - Gout [Unknown]
  - Inguinal hernia [Unknown]
  - Haematuria [Unknown]
  - Iron deficiency anaemia [Unknown]
  - Haemorrhoids [Unknown]
  - Diverticulum intestinal [Unknown]
  - Oedema [Unknown]
  - Diarrhoea [Unknown]
  - Abdominal pain [Unknown]
  - Bone disorder [Unknown]
  - Chondropathy [Unknown]
  - Chronic obstructive pulmonary disease [Not Recovered/Not Resolved]
  - Dyslipidaemia [Unknown]
  - Malignant hypertensive heart disease [Unknown]
  - Blood pressure fluctuation [Unknown]
  - Stress [Unknown]
  - Dyspepsia [Unknown]
